FAERS Safety Report 6823250-3 (Version None)
Quarter: 2010Q3

REPORT INFORMATION
  Report Type: 
  Country: None (occurrence: None)
  Receive Date: 20100702
  Receipt Date: 20100615
  Transmission Date: 20110219
  Serious: Yes (Other)
  Sender: FDA-Public Use
  Company Number: 1-23038406

PATIENT
  Age: 18 Year
  Sex: Female

DRUGS (2)
  1. LEVETIRACETAM [Suspect]
     Indication: EPILEPSY
  2. DIVALPROEX SODIUM [Suspect]
     Indication: EPILEPSY

REACTIONS (4)
  - CONVULSION [None]
  - IRON BINDING CAPACITY TOTAL DECREASED [None]
  - IRON OVERLOAD [None]
  - TRANSFERRIN SATURATION INCREASED [None]
